FAERS Safety Report 5353653-8 (Version None)
Quarter: 2007Q2

REPORT INFORMATION
  Report Type: 
  Country: None (occurrence: None)
  Receive Date: 20070612
  Receipt Date: 20070602
  Transmission Date: 20071010
  Serious: Yes (Other)
  Sender: FDA-Public Use
  Company Number: US-ROCHE-500490

PATIENT

DRUGS (1)
  1. XELODA [Suspect]
     Indication: RECTAL CANCER
     Route: 065

REACTIONS (1)
  - INTERSTITIAL LUNG DISEASE [None]
